FAERS Safety Report 20148950 (Version 1)
Quarter: 2021Q4

REPORT INFORMATION
  Report Type: Spontaneous
  Country: HR (occurrence: HR)
  Receive Date: 20211204
  Receipt Date: 20211204
  Transmission Date: 20220303
  Serious: Yes (Other)
  Sender: FDA-Public Use
  Company Number: None

PATIENT
  Sex: Female

DRUGS (5)
  1. CLOZAPINE [Suspect]
     Active Substance: CLOZAPINE
     Indication: Product used for unknown indication
     Dosage: 125 MG, QD
     Route: 048
     Dates: start: 20210711, end: 20210711
  2. PANTOPRAZOLE SODIUM [Suspect]
     Active Substance: PANTOPRAZOLE SODIUM
     Indication: Product used for unknown indication
     Dosage: 60 MG, QD
     Route: 048
     Dates: start: 20210711, end: 20210711
  3. AMINOPHENAZONE\CAFFEINE\CODEINE \PHENACETIN [Suspect]
     Active Substance: AMINOPHENAZONE\CAFFEINE\CODEINE \PHENACETIN
     Indication: Product used for unknown indication
     Dosage: 2 DOSAGE FORM, QD(1 DF = 250 MG PARACETAMOL + 210 MG PROPIFENAZON + 50 MG KOFEIN + 10 MG KODEINFOSFA
     Route: 048
     Dates: start: 20210711, end: 20210711
  4. ANDOL [Suspect]
     Active Substance: ASPIRIN
     Indication: Product used for unknown indication
     Dosage: 1.8 G, QD
     Route: 048
     Dates: start: 20210711, end: 20210711
  5. ANDOL [Suspect]
     Active Substance: ASPIRIN
     Dosage: 100 MG, QD
     Route: 048
     Dates: start: 20210711, end: 20210711

REACTIONS (2)
  - Suicide attempt [Unknown]
  - Intentional overdose [Unknown]

NARRATIVE: CASE EVENT DATE: 20210711
